FAERS Safety Report 12847145 (Version 14)
Quarter: 2017Q3

REPORT INFORMATION
  Report Type: Report from Study
  Country: BR (occurrence: BR)
  Receive Date: 20161014
  Receipt Date: 20170807
  Transmission Date: 20171127
  Serious: Yes (Hospitalization, Other)
  Sender: FDA-Public Use
  Company Number: BR-VIIV HEALTHCARE LIMITED-BR2016GSK136663

PATIENT
  Age: 57 Year
  Sex: Male
  Weight: 64.8 kg

DRUGS (32)
  1. FOSTEMSAVIR [Suspect]
     Active Substance: FOSTEMSAVIR TROMETHAMINE
     Dosage: UNK
  2. SODIUM POLYSTYRENE SULFONATE. [Concomitant]
     Active Substance: SODIUM POLYSTYRENE SULFONATE
  3. CHLORTALIDONE [Concomitant]
     Active Substance: CHLORTHALIDONE
     Dosage: UNK
     Dates: start: 20160930, end: 20161130
  4. RITONAVIR. [Suspect]
     Active Substance: RITONAVIR
     Dosage: 100 MG, BID
     Route: 048
     Dates: start: 20160920, end: 20161006
  5. DARUNAVIR [Suspect]
     Active Substance: DARUNAVIR
     Dosage: 600 MG, BID
     Route: 048
     Dates: start: 20161010
  6. ENFUVIRTIDE. [Concomitant]
     Active Substance: ENFUVIRTIDE
     Indication: HIV INFECTION
     Dosage: 90 MG, BID
     Dates: start: 20161010
  7. ENALAPRIL [Concomitant]
     Active Substance: ENALAPRIL
     Dosage: UNK
     Dates: start: 201505, end: 20160930
  8. FOSTEMSAVIR [Suspect]
     Active Substance: FOSTEMSAVIR TROMETHAMINE
     Indication: HIV INFECTION
     Dosage: 1200 MG, UNK
     Route: 048
     Dates: start: 20160721
  9. DARUNAVIR [Suspect]
     Active Substance: DARUNAVIR
     Indication: HIV INFECTION
     Dosage: 1200 MG, UNK
     Route: 048
     Dates: start: 20160721
  10. ETRAVIRINE [Suspect]
     Active Substance: ETRAVIRINE
     Dosage: 400 MG, UNK
     Route: 048
     Dates: start: 20161010
  11. NPH INSULIN [Concomitant]
     Active Substance: INSULIN BEEF
     Dosage: UNK
     Dates: start: 201105
  12. AMLODIPINE [Concomitant]
     Active Substance: AMLODIPINE BESYLATE
     Dosage: UNK
     Dates: start: 20160930, end: 20161213
  13. DOLUTEGRAVIR [Suspect]
     Active Substance: DOLUTEGRAVIR
     Indication: HIV INFECTION
     Dosage: 50 MG, BID
     Route: 048
     Dates: start: 20160721, end: 20161108
  14. DOLUTEGRAVIR [Suspect]
     Active Substance: DOLUTEGRAVIR
     Dosage: 50 MG, BID
     Route: 048
     Dates: start: 20161010, end: 20161108
  15. DARUNAVIR [Suspect]
     Active Substance: DARUNAVIR
     Dosage: 600 MG, BID
     Route: 048
     Dates: start: 20160920, end: 20161006
  16. OMEPRAZOLE. [Concomitant]
     Active Substance: OMEPRAZOLE
     Dosage: UNK
     Dates: end: 20161003
  17. BAKTAR [Concomitant]
     Active Substance: SULFAMETHOXAZOLE\TRIMETHOPRIM
     Dosage: UNK
     Dates: end: 20160925
  18. SULFAMETHOXAZOLE + TRIMETHOPRIM [Concomitant]
     Active Substance: SULFAMETHOXAZOLE\TRIMETHOPRIM
     Dosage: UNK
     Dates: start: 20160926
  19. RITONAVIR. [Suspect]
     Active Substance: RITONAVIR
     Indication: HIV INFECTION
     Dosage: 100 MG, BID
     Dates: start: 20160721
  20. RITONAVIR. [Suspect]
     Active Substance: RITONAVIR
     Dosage: 100 MG, BID
     Route: 048
     Dates: start: 20161010
  21. T20 [Concomitant]
     Indication: HIV INFECTION
     Dosage: UNK
     Dates: start: 20161010
  22. FUROSEMIDE. [Concomitant]
     Active Substance: FUROSEMIDE
     Dosage: UNK
     Dates: start: 20160930, end: 20160930
  23. SPIRONOLACTONE. [Concomitant]
     Active Substance: SPIRONOLACTONE
     Dosage: UNK
     Dates: start: 201505, end: 20160930
  24. AAS [Concomitant]
     Active Substance: ASPIRIN
     Dosage: UNK
     Dates: start: 201505
  25. DOLUTEGRAVIR [Suspect]
     Active Substance: DOLUTEGRAVIR
     Dosage: 50 MG, BID
     Route: 048
     Dates: start: 20160920, end: 20161006
  26. ETRAVIRINE [Suspect]
     Active Substance: ETRAVIRINE
     Dosage: 400 MG, QD
     Route: 048
     Dates: start: 20160920, end: 20161006
  27. SODIUM BICARBONATE. [Concomitant]
     Active Substance: SODIUM BICARBONATE
  28. ASPIRIN. [Concomitant]
     Active Substance: ASPIRIN
     Dosage: UNK
     Dates: start: 201505
  29. NORMAL SALINE [Concomitant]
     Active Substance: SODIUM CHLORIDE
  30. ETRAVIRINE [Suspect]
     Active Substance: ETRAVIRINE
     Indication: HIV INFECTION
     Dosage: 400 MG, UNK
     Route: 048
     Dates: start: 20160721
  31. FENOTEROL [Concomitant]
     Active Substance: FENOTEROL
     Dosage: UNK
     Dates: start: 20160930, end: 20160930
  32. CALCIUM GLUCONATE. [Concomitant]
     Active Substance: CALCIUM GLUCONATE

REACTIONS (2)
  - Acute kidney injury [Recovered/Resolved]
  - Renal impairment [Recovered/Resolved]

NARRATIVE: CASE EVENT DATE: 20160912
